FAERS Safety Report 18844400 (Version 1)
Quarter: 2021Q1

REPORT INFORMATION
  Report Type: Spontaneous
  Country: US (occurrence: US)
  Receive Date: 20210203
  Receipt Date: 20210203
  Transmission Date: 20210419
  Serious: Yes (Hospitalization)
  Sender: FDA-Public Use
  Company Number: None

PATIENT
  Age: 59 Year
  Sex: Male

DRUGS (3)
  1. OPSUMIT [Suspect]
     Active Substance: MACITENTAN
     Indication: PULMONARY ARTERIAL HYPERTENSION
     Route: 048
     Dates: start: 20190621
  2. SILDENAFIL. [Suspect]
     Active Substance: SILDENAFIL
  3. FUROSEMIDE. [Suspect]
     Active Substance: FUROSEMIDE

REACTIONS (5)
  - Pulmonary embolism [None]
  - COVID-19 [None]
  - Chronic obstructive pulmonary disease [None]
  - Acute respiratory failure [None]
  - Cardiac failure congestive [None]

NARRATIVE: CASE EVENT DATE: 20210110
